FAERS Safety Report 7125512-1 (Version None)
Quarter: 2010Q4

REPORT INFORMATION
  Report Type: 
  Country: None (occurrence: None)
  Receive Date: 20101129
  Receipt Date: 20101119
  Transmission Date: 20110411
  Serious: Yes (Other)
  Sender: FDA-Public Use
  Company Number: US-ABBOTT-10P-163-0687283-00

PATIENT
  Sex: Female

DRUGS (2)
  1. LUPRON DEPOT [Suspect]
     Indication: ENDOMETRIOSIS
  2. LUPRON DEPOT [Suspect]
     Indication: ADENOMYOSIS

REACTIONS (7)
  - BONE DISORDER [None]
  - DRUG INEFFECTIVE [None]
  - ENDOMETRIOSIS [None]
  - FEELING ABNORMAL [None]
  - HYSTERECTOMY [None]
  - INTERVERTEBRAL DISC PROTRUSION [None]
  - OSTEOPOROSIS [None]
